FAERS Safety Report 17813710 (Version 1)
Quarter: 2020Q2

REPORT INFORMATION
  Report Type: Report from Study
  Country: DE (occurrence: DE)
  Receive Date: 20200521
  Receipt Date: 20200521
  Transmission Date: 20200714
  Serious: Yes (Hospitalization, Other)
  Sender: FDA-Public Use
  Company Number: DE-BAYER-2020-052612

PATIENT
  Age: 21 Year
  Sex: Female

DRUGS (1)
  1. KYLEENA [Suspect]
     Active Substance: LEVONORGESTREL
     Indication: CONTRACEPTION
     Dosage: 16 ?G PER DAY, CONTINUOUSLY
     Route: 015
     Dates: start: 20190204

REACTIONS (1)
  - Ovarian cystectomy [Recovered/Resolved]

NARRATIVE: CASE EVENT DATE: 201906
